FAERS Safety Report 5608557-X (Version None)
Quarter: 2008Q1

REPORT INFORMATION
  Report Type: 
  Country: None (occurrence: None)
  Receive Date: 20080125
  Receipt Date: 20080115
  Transmission Date: 20080703
  Serious: Yes (Hospitalization)
  Sender: FDA-Public Use
  Company Number: CIP08000069

PATIENT

DRUGS (1)
  1. DIDRONEL [Suspect]

REACTIONS (1)
  - OSTEONECROSIS [None]
